FAERS Safety Report 19406712 (Version 1)
Quarter: 2021Q2

REPORT INFORMATION
  Report Type: Spontaneous
  Country: US (occurrence: US)
  Receive Date: 20210611
  Receipt Date: 20210611
  Transmission Date: 20210717
  Serious: No
  Sender: FDA-Public Use
  Company Number: US-SA-2021SA173240

PATIENT
  Age: 64 Year
  Sex: Female

DRUGS (17)
  1. JUXTAPID [Suspect]
     Active Substance: LOMITAPIDE MESYLATE
     Indication: TYPE IIA HYPERLIPIDAEMIA
     Dosage: 25 MG, HS
     Route: 048
     Dates: start: 20141005
  2. VITAMIN E NOS [Concomitant]
     Active Substance: .ALPHA.-TOCOPHEROL
  3. CYCLOBENZAPRINE HCL [Concomitant]
     Active Substance: CYCLOBENZAPRINE HYDROCHLORIDE
  4. OMEGA 3 FISH OIL [FISH OIL] [Concomitant]
  5. ALPRAZOLAM. [Concomitant]
     Active Substance: ALPRAZOLAM
  6. FLUOCINONIDE F [Concomitant]
  7. PLAVIX [Suspect]
     Active Substance: CLOPIDOGREL BISULFATE
     Indication: PRODUCT USED FOR UNKNOWN INDICATION
     Route: 065
  8. LEVOCETIRIZINE DIHYDROCHLORIDE. [Concomitant]
     Active Substance: LEVOCETIRIZINE DIHYDROCHLORIDE
  9. LISINOPRIL AND HYDROCHLOROTHIAZIDE [Concomitant]
     Active Substance: HYDROCHLOROTHIAZIDE\LISINOPRIL
  10. POTASSIUM 99 [Concomitant]
     Active Substance: POTASSIUM
     Dosage: UNK
  11. FLUNISOLIDE. [Concomitant]
     Active Substance: FLUNISOLIDE
  12. JUXTAPID [Suspect]
     Active Substance: LOMITAPIDE MESYLATE
     Dosage: 20 MG, QD
     Route: 048
  13. PRALUENT [Concomitant]
     Active Substance: ALIROCUMAB
  14. NITROSTAT [Concomitant]
     Active Substance: NITROGLYCERIN
  15. METAMUCIL THERAPY FOR REGULARITY [Concomitant]
     Active Substance: PSYLLIUM HUSK
  16. LACTOBACILLUS ACIDOPHILUS [Concomitant]
     Active Substance: LACTOBACILLUS ACIDOPHILUS
  17. ASPIRINE [Concomitant]
     Active Substance: ASPIRIN

REACTIONS (6)
  - COVID-19 [Unknown]
  - Haemorrhoid operation [Unknown]
  - Dyspepsia [Recovered/Resolved]
  - Rhinorrhoea [Unknown]
  - Laboratory test abnormal [Recovered/Resolved]
  - Hepatic enzyme increased [Unknown]

NARRATIVE: CASE EVENT DATE: 20200528
